FAERS Safety Report 18706780 (Version 2)
Quarter: 2021Q1

REPORT INFORMATION
  Report Type: Report from Study
  Country: US (occurrence: US)
  Receive Date: 20210106
  Receipt Date: 20210319
  Transmission Date: 20210419
  Serious: Yes (Death)
  Sender: FDA-Public Use
  Company Number: US-VIFOR (INTERNATIONAL) INC.-VIT-2021-00017

PATIENT
  Age: 62 Year
  Sex: Female

DRUGS (112)
  1. VELPHORO [Suspect]
     Active Substance: SUCROFERRIC OXYHYDROXIDE
     Dosage: WITH MEALS
     Route: 048
     Dates: start: 20191017, end: 20200522
  2. MIRCERA [Suspect]
     Active Substance: METHOXY POLYETHYLENE GLYCOL-EPOETIN BETA
     Indication: PRODUCT USED FOR UNKNOWN INDICATION
     Dates: start: 20201026
  3. CLOPIDOGREL [Concomitant]
     Active Substance: CLOPIDOGREL BISULFATE
     Route: 048
     Dates: start: 20190215, end: 20190626
  4. GABAPENTIN. [Concomitant]
     Active Substance: GABAPENTIN
     Dosage: 60 CAPSULE
     Route: 048
     Dates: start: 20201105, end: 20201105
  5. LANTUS SOLOSTAR [Concomitant]
     Active Substance: INSULIN GLARGINE
     Dates: start: 20200120, end: 20210107
  6. METOCLOPRAMIDE. [Concomitant]
     Active Substance: METOCLOPRAMIDE
     Route: 048
     Dates: start: 20190220, end: 20190626
  7. MIDODRINE [Concomitant]
     Active Substance: MIDODRINE
     Route: 048
     Dates: start: 20200130, end: 20200930
  8. NITROGLYCERIN. [Concomitant]
     Active Substance: NITROGLYCERIN
     Dates: start: 20201105, end: 20201105
  9. PANTOPRAZOLE [Concomitant]
     Active Substance: PANTOPRAZOLE
     Route: 048
     Dates: start: 20190619, end: 20200522
  10. RANOLAZINE ER [Concomitant]
     Active Substance: RANOLAZINE
     Route: 048
     Dates: end: 20200623
  11. TRESIBA FLEXTOUCH INSULIN [Concomitant]
     Dates: start: 20190426, end: 20190520
  12. HYDRALAZINE [Concomitant]
     Active Substance: HYDRALAZINE HYDROCHLORIDE
     Route: 048
     Dates: end: 20200522
  13. PREDNISOLONE ACETATE. [Concomitant]
     Active Substance: PREDNISOLONE ACETATE
     Route: 047
     Dates: start: 20190129, end: 20190520
  14. CLONIDINE HCL [Concomitant]
     Active Substance: CLONIDINE HYDROCHLORIDE
     Indication: BLOOD PRESSURE MEASUREMENT
     Route: 048
     Dates: start: 20190219, end: 20190517
  15. VELPHORO [Suspect]
     Active Substance: SUCROFERRIC OXYHYDROXIDE
     Dosage: WITH MEALS
     Route: 048
     Dates: end: 20200522
  16. ASPIRIN. [Concomitant]
     Active Substance: ASPIRIN
     Dosage: 90 TABLETS
     Route: 048
     Dates: start: 20150514
  17. GABAPENTIN. [Concomitant]
     Active Substance: GABAPENTIN
     Dosage: AT BEDTIME
     Route: 048
     Dates: start: 20190515, end: 20190626
  18. LEVOTHYROXINE. [Concomitant]
     Active Substance: LEVOTHYROXINE
     Route: 048
     Dates: start: 20190507, end: 20190626
  19. LIDOCAINE PRILOCAINE [Concomitant]
     Active Substance: LIDOCAINE\PRILOCAINE
     Dosage: APPLY SMALL AMOUNT TO ACCESS SITE (AVF) 1 TO 2 HOURS BEFORE DIALYSIS. COVER WITH OCCLUSIVE ?DRESSING
     Dates: start: 20191017, end: 20210107
  20. METOCLOPRAMIDE. [Concomitant]
     Active Substance: METOCLOPRAMIDE
     Dosage: 60 TABLET, TAKE 30 MINUTES BEFORE MEAL
     Route: 048
     Dates: start: 20200623, end: 20201028
  21. METOCLOPRAMIDE. [Concomitant]
     Active Substance: METOCLOPRAMIDE
     Route: 048
     Dates: start: 20190612, end: 20210107
  22. METOPROLOL SUCCINATE ER [Concomitant]
     Active Substance: METOPROLOL SUCCINATE
     Route: 048
     Dates: start: 20190328, end: 20190626
  23. RANOLAZINE ER [Concomitant]
     Active Substance: RANOLAZINE
     Route: 048
     Dates: start: 20200528, end: 20210107
  24. TRADJENTA [Concomitant]
     Active Substance: LINAGLIPTIN
     Dosage: BEFORE MEALS
     Route: 048
     Dates: start: 20200123, end: 20201120
  25. TRESIBA FLEXTOUCH INSULIN [Concomitant]
     Route: 058
     Dates: start: 20181207, end: 20190520
  26. SIMVASTATIN. [Concomitant]
     Active Substance: SIMVASTATIN
     Route: 048
     Dates: end: 20161229
  27. NIFEDIPINE. [Concomitant]
     Active Substance: NIFEDIPINE
     Route: 048
     Dates: start: 20181116, end: 20200302
  28. PREDNISONE. [Concomitant]
     Active Substance: PREDNISONE
     Route: 048
     Dates: start: 20170805, end: 20170829
  29. METOPROLOL TARTRATE. [Concomitant]
     Active Substance: METOPROLOL TARTRATE
     Route: 048
     Dates: start: 20140211, end: 20170620
  30. ZOFRAN [Concomitant]
     Active Substance: ONDANSETRON HYDROCHLORIDE
     Route: 048
     Dates: start: 20160901
  31. CRESTOR [Concomitant]
     Active Substance: ROSUVASTATIN CALCIUM
     Route: 048
     Dates: start: 20150806
  32. CRESTOR [Concomitant]
     Active Substance: ROSUVASTATIN CALCIUM
     Dosage: AT BEDTIME
     Route: 048
     Dates: start: 20140308
  33. VANCOMYCIN HCL [Concomitant]
     Active Substance: VANCOMYCIN HYDROCHLORIDE
     Route: 042
     Dates: start: 20200710
  34. VELPHORO [Suspect]
     Active Substance: SUCROFERRIC OXYHYDROXIDE
     Dosage: WITH MEALS
     Route: 048
     Dates: start: 20200408, end: 20200623
  35. MIRCERA [Suspect]
     Active Substance: METHOXY POLYETHYLENE GLYCOL-EPOETIN BETA
     Dates: start: 20200928
  36. ATORVASTATIN [Concomitant]
     Active Substance: ATORVASTATIN
     Dosage: 90 TABLET
     Route: 048
     Dates: start: 20200302, end: 20200302
  37. EZETIMIBE. [Concomitant]
     Active Substance: EZETIMIBE
     Route: 048
     Dates: start: 20190404, end: 20190626
  38. LEVOTHYROXINE. [Concomitant]
     Active Substance: LEVOTHYROXINE
     Dates: start: 20200603, end: 20210107
  39. LIDOCAINE PRILOCAINE [Concomitant]
     Active Substance: LIDOCAINE\PRILOCAINE
     Dosage: APPLY SMALL AMOUNT TO ACCESS SITE (AVF) 1 TO 2 HOURS BEFORE DIALYSIS. COVER WITH OCCLUSIVE ?DRESSING
     Dates: start: 20200626, end: 20200730
  40. SYNTHROID [Concomitant]
     Active Substance: LEVOTHYROXINE SODIUM
     Dosage: 90 TABLET
     Route: 048
     Dates: start: 20190621, end: 20190621
  41. METHYLPREDNISOLONE. [Concomitant]
     Active Substance: METHYLPREDNISOLONE
     Dates: start: 20200717, end: 20201120
  42. HYDRALAZINE [Concomitant]
     Active Substance: HYDRALAZINE HYDROCHLORIDE
     Route: 048
     Dates: start: 20140814, end: 20140814
  43. SENSIPAR [Concomitant]
     Active Substance: CINACALCET HYDROCHLORIDE
     Route: 048
     Dates: start: 20180416, end: 20180523
  44. VALSARTAN. [Concomitant]
     Active Substance: VALSARTAN
     Route: 048
     Dates: end: 20170920
  45. VENOFER [Suspect]
     Active Substance: IRON SUCROSE
     Indication: PRODUCT USED FOR UNKNOWN INDICATION
     Route: 042
     Dates: start: 20201026
  46. CINACALCET. [Concomitant]
     Active Substance: CINACALCET
     Dosage: 90 TABLET
     Route: 048
  47. CLOPIDOGREL [Concomitant]
     Active Substance: CLOPIDOGREL BISULFATE
     Route: 048
     Dates: start: 20190215, end: 20200302
  48. EZETIMIBE. [Concomitant]
     Active Substance: EZETIMIBE
     Route: 048
     Dates: start: 20201201, end: 20201201
  49. EZETIMIBE. [Concomitant]
     Active Substance: EZETIMIBE
     Route: 048
     Dates: start: 20190225, end: 20190517
  50. FAMOTIDINE. [Concomitant]
     Active Substance: FAMOTIDINE
     Indication: DYSPEPSIA
     Dosage: 60 TABLET
     Route: 048
  51. GABAPENTIN. [Concomitant]
     Active Substance: GABAPENTIN
     Dosage: 180 CAPSULE
     Route: 048
     Dates: start: 20200429, end: 20210107
  52. METOPROLOL SUCCINATE ER [Concomitant]
     Active Substance: METOPROLOL SUCCINATE
     Route: 048
     Dates: end: 20161229
  53. RENVELA [Concomitant]
     Active Substance: SEVELAMER CARBONATE
     Dosage: WITH MEALS
     Route: 048
     Dates: start: 20200408, end: 20200730
  54. RENVELA [Concomitant]
     Active Substance: SEVELAMER CARBONATE
     Dosage: WITH MEALS
     Route: 048
     Dates: start: 20150519, end: 20190517
  55. MIRCERA [Suspect]
     Active Substance: METHOXY POLYETHYLENE GLYCOL-EPOETIN BETA
     Dates: start: 20201012
  56. VENOFER [Suspect]
     Active Substance: IRON SUCROSE
     Route: 042
     Dates: start: 20201030
  57. CARVEDILOL. [Concomitant]
     Active Substance: CARVEDILOL
     Dosage: 180 TABLET
     Route: 048
  58. CLOPIDOGREL [Concomitant]
     Active Substance: CLOPIDOGREL BISULFATE
     Route: 048
     Dates: start: 20201015, end: 20201015
  59. LANTUS SOLOSTAR [Concomitant]
     Active Substance: INSULIN GLARGINE
     Dates: start: 20200630, end: 20201022
  60. LISINOPRIL. [Concomitant]
     Active Substance: LISINOPRIL
     Dates: start: 20200430, end: 20201010
  61. MIDODRINE [Concomitant]
     Active Substance: MIDODRINE
     Route: 048
     Dates: start: 20200930, end: 20210107
  62. RENVELA [Concomitant]
     Active Substance: SEVELAMER CARBONATE
     Dates: start: 20200908, end: 20201101
  63. OMEGA 3 ACID ETHYL ESTERS [Concomitant]
     Active Substance: OMEGA-3-ACID ETHYL ESTERS
     Dates: start: 20200420, end: 20200730
  64. AVAPRO [Concomitant]
     Active Substance: IRBESARTAN
     Route: 048
     Dates: start: 20200302, end: 20201120
  65. SIMVASTATIN. [Concomitant]
     Active Substance: SIMVASTATIN
     Route: 048
     Dates: start: 20190222, end: 20200302
  66. OFLOXACIN. [Concomitant]
     Active Substance: OFLOXACIN
     Route: 047
     Dates: start: 20190129, end: 20190520
  67. HUMALOG [Concomitant]
     Active Substance: INSULIN LISPRO
     Dosage: WITH MEALS
     Route: 058
     Dates: start: 20171215
  68. VALSARTAN. [Concomitant]
     Active Substance: VALSARTAN
     Route: 048
     Dates: end: 20170223
  69. OMEPRAZOLE. [Concomitant]
     Active Substance: OMEPRAZOLE
     Route: 048
     Dates: end: 20170620
  70. EZETIMIBE. [Concomitant]
     Active Substance: EZETIMIBE
     Route: 048
     Dates: start: 20200429, end: 20210107
  71. GABAPENTIN. [Concomitant]
     Active Substance: GABAPENTIN
     Dosage: AT BEDTIME
     Route: 048
     Dates: start: 20190621, end: 20200623
  72. LISINOPRIL. [Concomitant]
     Active Substance: LISINOPRIL
     Dates: start: 20200430, end: 20201119
  73. PANTOPRAZOLE [Concomitant]
     Active Substance: PANTOPRAZOLE
     Route: 048
     Dates: start: 20200515, end: 20210107
  74. RENVELA [Concomitant]
     Active Substance: SEVELAMER CARBONATE
     Dosage: WITH MEALS
     Route: 048
     Dates: start: 20200408, end: 20210107
  75. TRESIBA FLEXTOUCH INSULIN [Concomitant]
     Dates: start: 20190621, end: 20190625
  76. INSULIN PEN [Concomitant]
     Active Substance: INSULIN NOS
     Dates: start: 20200408, end: 20201210
  77. OXYCODONE ACETAMINOPHEN [Concomitant]
     Active Substance: ACETAMINOPHEN\OXYCODONE HYDROCHLORIDE
     Dosage: 5?325 MG
     Dates: start: 20190504, end: 20190520
  78. SENSIPAR [Concomitant]
     Active Substance: CINACALCET HYDROCHLORIDE
     Route: 048
     Dates: start: 20180905
  79. VELPHORO [Suspect]
     Active Substance: SUCROFERRIC OXYHYDROXIDE
     Indication: PRODUCT USED FOR UNKNOWN INDICATION
     Dosage: WITH MEALS
     Route: 048
  80. VENOFER [Suspect]
     Active Substance: IRON SUCROSE
     Route: 042
     Dates: start: 20201028
  81. ALBUTEROL SULFATE. [Concomitant]
     Active Substance: ALBUTEROL SULFATE
     Dosage: 60 VIAL
  82. CARVEDILOL. [Concomitant]
     Active Substance: CARVEDILOL
     Dosage: 180 TABLET
     Route: 048
     Dates: start: 20171215
  83. LEVOTHYROXINE. [Concomitant]
     Active Substance: LEVOTHYROXINE
     Dates: start: 20200603, end: 20201022
  84. LIDOCAINE PRILOCAINE [Concomitant]
     Active Substance: LIDOCAINE\PRILOCAINE
     Dosage: APPLY SMALL AMOUNT TO ACCESS SITE (AVF) 1 TO 2 HOURS BEFORE DIALYSIS. COVER WITH OCCLUSIVE ?DRESSING
     Dates: start: 20200929, end: 20201212
  85. PANTOPRAZOLE [Concomitant]
     Active Substance: PANTOPRAZOLE
     Route: 048
     Dates: start: 20180917, end: 20190517
  86. PANTOPRAZOLE [Concomitant]
     Active Substance: PANTOPRAZOLE
     Route: 048
     Dates: start: 20200515, end: 20201010
  87. RANOLAZINE ER [Concomitant]
     Active Substance: RANOLAZINE
     Dates: start: 20200528, end: 20201019
  88. RANOLAZINE ER [Concomitant]
     Active Substance: RANOLAZINE
     Route: 048
     Dates: start: 20200528, end: 20200730
  89. TRADJENTA [Concomitant]
     Active Substance: LINAGLIPTIN
     Dosage: BEFORE MEALS
     Route: 048
     Dates: start: 20190621, end: 20200522
  90. OMEGA 3 ACID ETHYL ESTERS [Concomitant]
     Active Substance: OMEGA-3-ACID ETHYL ESTERS
     Dates: start: 20200630, end: 20201120
  91. GEMFIBROZIL. [Concomitant]
     Active Substance: GEMFIBROZIL
     Route: 048
     Dates: start: 20190123
  92. MECLIZINE [Concomitant]
     Active Substance: MECLIZINE HYDROCHLORIDE
     Indication: DIZZINESS
     Route: 048
     Dates: end: 20161220
  93. VITAMIN D2 [Concomitant]
     Active Substance: ERGOCALCIFEROL
     Route: 048
     Dates: start: 20150415
  94. CLOPIDOGREL [Concomitant]
     Active Substance: CLOPIDOGREL BISULFATE
     Route: 048
     Dates: end: 20160418
  95. LEVOTHYROXINE. [Concomitant]
     Active Substance: LEVOTHYROXINE
     Dates: start: 20200603, end: 20210107
  96. LEVOTHYROXINE. [Concomitant]
     Active Substance: LEVOTHYROXINE
     Dates: start: 20200603, end: 20200730
  97. LISINOPRIL. [Concomitant]
     Active Substance: LISINOPRIL
     Dates: start: 20200430, end: 20201119
  98. NITROGLYCERIN. [Concomitant]
     Active Substance: NITROGLYCERIN
     Dates: end: 20210107
  99. VITAMINS NOS [Concomitant]
     Active Substance: VITAMINS
     Dosage: 90 TABLET
     Route: 048
  100. RANOLAZINE ER [Concomitant]
     Active Substance: RANOLAZINE
     Dosage: 60 TABLET
     Route: 048
     Dates: start: 20201112, end: 20201112
  101. RENVELA [Concomitant]
     Active Substance: SEVELAMER CARBONATE
     Dosage: WITH MEALS
     Route: 048
     Dates: start: 20200408, end: 20201203
  102. RENVELA [Concomitant]
     Active Substance: SEVELAMER CARBONATE
     Dosage: WITH MEALS
     Route: 048
     Dates: start: 20190506, end: 20200522
  103. VITAMIN C [Concomitant]
     Active Substance: ASCORBIC ACID
     Dates: start: 20200717, end: 20200717
  104. OXYCODONE ACETAMINOPHEN [Concomitant]
     Active Substance: ACETAMINOPHEN\OXYCODONE HYDROCHLORIDE
     Dosage: 5?325 MG
     Dates: start: 20200611, end: 20201120
  105. AZITHROMYCIN ANHYDROUS. [Concomitant]
     Active Substance: AZITHROMYCIN ANHYDROUS
     Dates: start: 20200717, end: 20201120
  106. BRILINTA [Concomitant]
     Active Substance: TICAGRELOR
     Route: 048
     Dates: start: 20200505, end: 20201120
  107. ACETAMINOPHEN. [Concomitant]
     Active Substance: ACETAMINOPHEN
     Indication: PAIN
     Route: 054
  108. HYDRALAZINE [Concomitant]
     Active Substance: HYDRALAZINE HYDROCHLORIDE
     Route: 048
     Dates: start: 20180521, end: 20190626
  109. METANX [Concomitant]
     Active Substance: LEVOMEFOLATE CALCIUM\METHYLCOBALAMIN\PYRIDOXAL PHOSPHATE ANHYDROUS
     Route: 048
     Dates: end: 20200302
  110. METHOCARBAMOL. [Concomitant]
     Active Substance: METHOCARBAMOL
     Route: 048
     Dates: start: 20170805, end: 20171215
  111. METOPROLOL TARTRATE. [Concomitant]
     Active Substance: METOPROLOL TARTRATE
     Route: 048
     Dates: end: 20170620
  112. NOVOLOG [Concomitant]
     Active Substance: INSULIN ASPART
     Route: 058
     Dates: start: 20140913

REACTIONS (1)
  - Death [Fatal]
